FAERS Safety Report 25210279 (Version 2)
Quarter: 2025Q2

REPORT INFORMATION
  Report Type: Spontaneous
  Country: US (occurrence: US)
  Receive Date: 20250417
  Receipt Date: 20250627
  Transmission Date: 20250716
  Serious: No
  Sender: SANOFI AVENTIS
  Company Number: US-SA-2025SA108683

PATIENT
  Age: 50 Year
  Sex: Female

DRUGS (1)
  1. DUPIXENT [Suspect]
     Active Substance: DUPILUMAB
     Indication: Dermatitis atopic
     Dosage: 300 MG, QOW
     Route: 058

REACTIONS (11)
  - Pain [Unknown]
  - Respiratory symptom [Unknown]
  - Conjunctivitis [Unknown]
  - Eye irritation [Unknown]
  - Ocular hyperaemia [Unknown]
  - Erythema of eyelid [Unknown]
  - Lacrimation increased [Unknown]
  - Eye discharge [Unknown]
  - Injection site pain [Unknown]
  - Eczema [Unknown]
  - Therapeutic response shortened [Unknown]
